FAERS Safety Report 4345192-8 (Version None)
Quarter: 2004Q2

REPORT INFORMATION
  Report Type: 
  Country: None (occurrence: None)
  Receive Date: 20040420
  Receipt Date: 20040413
  Transmission Date: 20050107
  Serious: Yes (Life-Threatening)
  Sender: FDA-Public Use
  Company Number: 2004AP00624

PATIENT
  Age: 76 Year
  Sex: Male

DRUGS (6)
  1. IRESSA [Suspect]
     Indication: LUNG NEOPLASM MALIGNANT
     Dosage: 250 MG DAILY PO
     Route: 048
     Dates: start: 20040114, end: 20040131
  2. ZYLORIC ^FAES^ [Concomitant]
  3. RENIVACE [Concomitant]
  4. AMARYL [Concomitant]
  5. NAIXAN [Concomitant]
  6. VOLTAREN [Concomitant]

REACTIONS (2)
  - ACUTE RESPIRATORY FAILURE [None]
  - BACTERIAL INFECTION [None]
